FAERS Safety Report 13370950 (Version 4)
Quarter: 2019Q1

REPORT INFORMATION
  Report Type: Report from Study
  Country: US (occurrence: US)
  Receive Date: 20170324
  Receipt Date: 20190322
  Transmission Date: 20190417
  Serious: Yes (Other)
  Sender: FDA-Public Use
  Company Number: US-REGENERON PHARMACEUTICALS, INC.-2017-13615

PATIENT

DRUGS (2)
  1. EYLEA [Suspect]
     Active Substance: AFLIBERCEPT
     Indication: NEOVASCULAR AGE-RELATED MACULAR DEGENERATION
     Dosage: UNK
     Route: 065
  2. AVASTIN [Suspect]
     Active Substance: BEVACIZUMAB
     Indication: NEOVASCULAR AGE-RELATED MACULAR DEGENERATION
     Dosage: UNK

REACTIONS (7)
  - Dry age-related macular degeneration [Unknown]
  - Spinal column stenosis [Unknown]
  - Lacrimation increased [Recovering/Resolving]
  - Hypoaesthesia eye [Unknown]
  - Eye irritation [Unknown]
  - Ocular discomfort [Recovering/Resolving]
  - Condition aggravated [Not Recovered/Not Resolved]
